FAERS Safety Report 8495264-1 (Version None)
Quarter: 2012Q3

REPORT INFORMATION
  Report Type: 
  Country: None (occurrence: None)
  Receive Date: 20120709
  Receipt Date: 20120629
  Transmission Date: 20120928
  Serious: Yes (Life-Threatening, Other)
  Sender: FDA-Public Use
  Company Number: US-MSD-1207USA00102

PATIENT

DRUGS (3)
  1. ALOXI [Concomitant]
     Dosage: 0.25 MG, UNK
     Route: 042
  2. DEXAMETHASONE [Concomitant]
     Dosage: 10 MG, UNK
  3. FOSAPREPITANT DIMEGLUMINE [Suspect]
     Indication: PROPHYLAXIS OF NAUSEA AND VOMITING
     Dosage: 150 MG, UNK
     Route: 042
     Dates: start: 20120620

REACTIONS (1)
  - ANAPHYLACTIC REACTION [None]
